FAERS Safety Report 7153711-1 (Version None)
Quarter: 2010Q4

REPORT INFORMATION
  Report Type: 
  Country: None (occurrence: None)
  Receive Date: 20101213
  Receipt Date: 20101201
  Transmission Date: 20110411
  Serious: Yes (Hospitalization)
  Sender: FDA-Public Use
  Company Number: AU-MERCK-1012USA00690

PATIENT
  Sex: Male
  Weight: 57 kg

DRUGS (11)
  1. ZOCOR [Suspect]
     Indication: METABOLIC DISORDER
     Route: 048
     Dates: end: 20051107
  2. CLARITHROMYCIN [Suspect]
     Indication: INFECTION
     Route: 065
     Dates: start: 20051010, end: 20051107
  3. ASPIRIN [Concomitant]
     Indication: TRANSIENT ISCHAEMIC ATTACK
     Route: 065
  4. ATENOLOL [Concomitant]
     Indication: ESSENTIAL HYPERTENSION
     Route: 065
     Dates: end: 20051107
  5. BACTRIM [Concomitant]
     Indication: INFECTION
     Route: 048
     Dates: start: 20051010, end: 20051107
  6. CODEINE PHOSPHATE [Concomitant]
     Indication: SENSORY DISTURBANCE
     Route: 065
     Dates: start: 20051104, end: 20051107
  7. COVERSYL PLUS (INDAPAMIDE (+) PERINDOPRIL ARGININE) [Concomitant]
     Indication: ESSENTIAL HYPERTENSION
     Route: 065
     Dates: end: 20051107
  8. DOTHIEPIN HYDROCHLORIDE [Concomitant]
     Indication: SLEEP DISORDER
     Route: 065
  9. NITROGLYCERIN [Concomitant]
     Indication: ANGINA PECTORIS
     Route: 065
  10. PANTOPRAZOLE [Concomitant]
     Route: 065
  11. ZINC (UNSPECIFIED) [Concomitant]
     Route: 065

REACTIONS (5)
  - DRUG INTERACTION [None]
  - HEPATITIS [None]
  - MUSCULAR WEAKNESS [None]
  - RENAL IMPAIRMENT [None]
  - RHABDOMYOLYSIS [None]
